FAERS Safety Report 24060831 (Version 5)
Quarter: 2025Q1

REPORT INFORMATION
  Report Type: Spontaneous
  Country: US (occurrence: US)
  Receive Date: 20240708
  Receipt Date: 20250206
  Transmission Date: 20250408
  Serious: No
  Sender: ROCHE
  Company Number: US-ROCHE-10000017609

PATIENT

DRUGS (2)
  1. XOLAIR [Suspect]
     Active Substance: OMALIZUMAB
     Indication: Product used for unknown indication
     Dosage: TAKES 2 150 MG INJECTION
     Route: 058
  2. XOLAIR [Suspect]
     Active Substance: OMALIZUMAB

REACTIONS (4)
  - Treatment failure [Unknown]
  - Syringe issue [Unknown]
  - Product dose omission issue [Unknown]
  - No adverse event [Unknown]
